FAERS Safety Report 11846235 (Version 8)
Quarter: 2016Q3

REPORT INFORMATION
  Report Type: Report from Study
  Country: BR (occurrence: BR)
  Receive Date: 20151217
  Receipt Date: 20160712
  Transmission Date: 20161109
  Serious: Yes (Hospitalization, Other)
  Sender: FDA-Public Use
  Company Number: PHHY2015BR163761

PATIENT
  Sex: Female
  Weight: 64 kg

DRUGS (9)
  1. ERYTHROPOIETIN [Concomitant]
     Active Substance: ERYTHROPOIETIN
     Indication: BONE MARROW FAILURE
     Route: 065
  2. EXJADE [Suspect]
     Active Substance: DEFERASIROX
     Indication: SICKLE CELL ANAEMIA
     Dosage: 25 MG/KG (3 DF OF 500 MG), QD
     Route: 048
     Dates: start: 20100305
  3. EXJADE [Suspect]
     Active Substance: DEFERASIROX
     Indication: BONE MARROW FAILURE
     Dosage: 1000 MG, QD
     Route: 048
     Dates: start: 201105
  4. EXJADE [Suspect]
     Active Substance: DEFERASIROX
     Dosage: 1 DF (10 MG/KG), QD (IN THE MORNING, FASTING)
     Route: 048
     Dates: start: 2012
  5. CLEXAN [Concomitant]
     Indication: THROMBOSIS
     Dosage: UNK UNK, QD
     Route: 065
     Dates: start: 2010
  6. EXJADE [Suspect]
     Active Substance: DEFERASIROX
     Dosage: 2 DF (15 MG/KG), QD (IN THE MORNING, FASTING)
     Route: 048
  7. CICLOSPORIN [Concomitant]
     Active Substance: CYCLOSPORINE
     Indication: PRODUCT USED FOR UNKNOWN INDICATION
     Route: 065
  8. MAGNESIUM CARBONATE [Concomitant]
     Active Substance: MAGNESIUM CARBONATE
     Indication: PRODUCT USED FOR UNKNOWN INDICATION
     Route: 065
  9. DIPYRONE [Concomitant]
     Active Substance: DIPYRONE
     Indication: PRODUCT USED FOR UNKNOWN INDICATION
     Route: 065

REACTIONS (45)
  - Blood magnesium decreased [Unknown]
  - Discomfort [Unknown]
  - Pain [Unknown]
  - Catarrh [Unknown]
  - Nausea [Unknown]
  - Pain in extremity [Unknown]
  - Oropharyngeal pain [Unknown]
  - Fatigue [Unknown]
  - Blood iron increased [Unknown]
  - Abdominal pain upper [Unknown]
  - Pulmonary thrombosis [Unknown]
  - H1N1 influenza [Unknown]
  - Neck pain [Unknown]
  - Dyspnoea [Unknown]
  - Haemorrhoids [Unknown]
  - Infection [Unknown]
  - Haemoglobin decreased [Unknown]
  - Feeling abnormal [Unknown]
  - Back pain [Unknown]
  - Neutrophil count decreased [Unknown]
  - Lung disorder [Unknown]
  - Gait disturbance [Unknown]
  - Oxygen saturation decreased [Unknown]
  - Immunodeficiency [Unknown]
  - Dysentery [Unknown]
  - Pharyngitis [Unknown]
  - Throat lesion [Unknown]
  - Throat irritation [Unknown]
  - Malaise [Unknown]
  - Weight decreased [Unknown]
  - Headache [Unknown]
  - Ear pain [Unknown]
  - Increased appetite [Unknown]
  - Insomnia [Unknown]
  - Gastrointestinal infection [Unknown]
  - Dysstasia [Unknown]
  - Musculoskeletal stiffness [Unknown]
  - Eating disorder [Unknown]
  - Parosmia [Unknown]
  - Jugular vein thrombosis [Unknown]
  - Tumour budding [Unknown]
  - Heart rate increased [Unknown]
  - Movement disorder [Unknown]
  - Furuncle [Unknown]
  - Swelling [Unknown]
